FAERS Safety Report 8315579-7 (Version None)
Quarter: 2012Q2

REPORT INFORMATION
  Report Type: 
  Country: None (occurrence: None)
  Receive Date: 20120426
  Receipt Date: 20120412
  Transmission Date: 20120825
  Serious: Yes (Other)
  Sender: FDA-Public Use
  Company Number: CHPA2012US009309

PATIENT
  Age: 56 Year
  Sex: Female

DRUGS (1)
  1. GAS-X PREVENTION [Suspect]
     Indication: ABDOMINAL DISTENSION
     Dosage: UNK, BEFORE EVERY LUNCH AND SOMETIMES BEFORE DINNER
     Route: 048

REACTIONS (2)
  - BLOOD URINE PRESENT [None]
  - BLADDER DISCOMFORT [None]
